FAERS Safety Report 10394331 (Version 1)
Quarter: 2014Q3

REPORT INFORMATION
  Report Type: Spontaneous
  Country: DE (occurrence: DE)
  Receive Date: 20140819
  Receipt Date: 20140819
  Transmission Date: 20150326
  Serious: Yes (Hospitalization)
  Sender: FDA-Public Use
  Company Number: DE-ABBVIE-14P-062-1272951-00

PATIENT
  Age: 22 Year
  Sex: Male
  Weight: 61.2 kg

DRUGS (61)
  1. DECORTIN H [Suspect]
     Active Substance: PREDNISOLONE
     Indication: COLITIS ULCERATIVE
     Dates: start: 20131125
  2. CANCIDAS [Suspect]
     Active Substance: CASPOFUNGIN ACETATE
     Indication: INFECTION PROPHYLAXIS
     Route: 042
     Dates: start: 20140122, end: 20140122
  3. PIRITRAMIDE [Suspect]
     Active Substance: PIRITRAMIDE
     Route: 042
     Dates: start: 20140125, end: 20140125
  4. IMODIUM [Concomitant]
     Active Substance: LOPERAMIDE HYDROCHLORIDE
     Indication: COLITIS ULCERATIVE
     Dates: start: 20140104
  5. CLEXANE [Concomitant]
     Active Substance: ENOXAPARIN SODIUM
     Indication: PRODUCT USED FOR UNKNOWN INDICATION
     Dates: start: 20140107
  6. NAROPIN [Concomitant]
     Active Substance: ROPIVACAINE HYDROCHLORIDE
     Dates: start: 20140118, end: 20140121
  7. IBUPROFEN. [Concomitant]
     Active Substance: IBUPROFEN
     Indication: PAIN
     Dates: start: 20140119, end: 20140119
  8. ONDANSETRON [Suspect]
     Active Substance: ONDANSETRON
     Dates: start: 20140124
  9. ZIENAM [Concomitant]
     Active Substance: CILASTATIN SODIUM\IMIPENEM
     Indication: INFECTION PROPHYLAXIS
     Dates: start: 20140116, end: 20140116
  10. IMERON [Concomitant]
     Indication: SCAN WITH CONTRAST
     Dates: start: 20140121, end: 20140121
  11. NUTRIFLEX [Concomitant]
     Active Substance: AMINO ACIDS\CARBOHYDRATES\ELECTROLYTES NOS
     Indication: ELECTROLYTE SUBSTITUTION THERAPY
     Dates: start: 20140118
  12. VOMEX A [Concomitant]
     Active Substance: DIMENHYDRINATE
     Indication: NAUSEA
     Dates: start: 20140119, end: 20140120
  13. PARACODIN [Concomitant]
     Active Substance: DIHYDROCODEINE BITARTRATE
     Indication: ANTITUSSIVE THERAPY
     Dates: start: 20140120, end: 20140120
  14. VIGANTOLETTEN [Concomitant]
     Active Substance: CHOLECALCIFEROL
     Indication: VITAMIN D DEFICIENCY
  15. DIPIDOLOR [Suspect]
     Active Substance: PIRITRAMIDE
     Indication: PAIN
     Dates: start: 20140116, end: 20140116
  16. PIPERACILLIN AND TAZOBACTAM [Concomitant]
     Active Substance: PIPERACILLIN SODIUM\TAZOBACTAM SODIUM
     Indication: INFECTION PROPHYLAXIS
     Dates: start: 20140120
  17. PROPOFOL. [Concomitant]
     Active Substance: PROPOFOL
     Indication: SEDATIVE THERAPY
     Dates: start: 20140107, end: 20140107
  18. POTASSIUM CHLORIDE. [Concomitant]
     Active Substance: POTASSIUM CHLORIDE
     Indication: ELECTROLYTE SUBSTITUTION THERAPY
     Dates: start: 20140115, end: 20140115
  19. FENTANYL. [Concomitant]
     Active Substance: FENTANYL
     Indication: SEDATIVE THERAPY
     Dates: start: 20140116, end: 20140117
  20. FREKA VIT [Concomitant]
     Indication: ELECTROLYTE SUBSTITUTION THERAPY
     Dates: start: 20140122, end: 20140127
  21. BUSCOPAN [Concomitant]
     Active Substance: BUTYLSCOPOLAMINE BROMIDE
     Indication: COLITIS ULCERATIVE
     Dates: start: 20140107
  22. PARACETAMOL [Concomitant]
     Active Substance: ACETAMINOPHEN
     Dates: start: 20140122, end: 20140122
  23. SEVREDOL [Concomitant]
     Active Substance: MORPHINE
     Indication: PAIN
     Dates: start: 20140120, end: 20140121
  24. ROCEPHIN [Concomitant]
     Active Substance: CEFTRIAXONE SODIUM
     Dates: start: 20140119, end: 20140120
  25. ELECTROLYTES NOS [Concomitant]
     Active Substance: ELECTROLYTES NOS
     Indication: ELECTROLYTE SUBSTITUTION THERAPY
     Dates: start: 20140115, end: 20140116
  26. TRANXILIUM [Concomitant]
     Active Substance: CLORAZEPATE DIPOTASSIUM
     Indication: SEDATIVE THERAPY
     Dates: start: 20140115, end: 20140115
  27. TAVOR [Suspect]
     Active Substance: LORAZEPAM
     Dates: start: 20140126, end: 20140126
  28. TARGIN [Suspect]
     Active Substance: NALOXONE HYDROCHLORIDE\OXYCODONE HYDROCHLORIDE
     Indication: PAIN
     Route: 048
     Dates: start: 20140118, end: 20140125
  29. OXYGESIC [Suspect]
     Active Substance: OXYCODONE
     Indication: PRODUCT USED FOR UNKNOWN INDICATION
     Route: 048
     Dates: start: 20140123, end: 20140125
  30. PIRITRAMIDE [Suspect]
     Active Substance: PIRITRAMIDE
     Indication: PAIN
     Route: 042
     Dates: start: 20140123, end: 20140123
  31. PARACETAMOL [Concomitant]
     Active Substance: ACETAMINOPHEN
     Dates: start: 20140118, end: 20140120
  32. VFEND [Concomitant]
     Active Substance: VORICONAZOLE
     Indication: INFECTION PROPHYLAXIS
     Dates: start: 20140121
  33. SODIUM CHLORIDE. [Concomitant]
     Active Substance: SODIUM CHLORIDE
     Indication: ELECTROLYTE SUBSTITUTION THERAPY
     Dates: start: 20140118
  34. ACC [Concomitant]
     Active Substance: ACETYLCYSTEINE
     Indication: COUGH
     Dates: start: 20140121
  35. MAALOXAN [Concomitant]
     Active Substance: ALUMINUM HYDROXIDE\MAGNESIUM HYDROXIDE
     Indication: ABDOMINAL PAIN UPPER
     Dates: start: 20140119, end: 20140120
  36. ULTANE [Suspect]
     Active Substance: SEVOFLURANE
     Indication: SEDATIVE THERAPY
     Dates: start: 20140116, end: 20140116
  37. OXYCODONE [Suspect]
     Active Substance: OXYCODONE
     Indication: PAIN
     Dates: start: 20140120, end: 20140120
  38. CANCIDAS [Suspect]
     Active Substance: CASPOFUNGIN ACETATE
     Route: 042
     Dates: start: 20140123
  39. PASPERTIN [Suspect]
     Active Substance: METOCLOPRAMIDE HYDROCHLORIDE
     Indication: NAUSEA
     Route: 042
     Dates: start: 20140121, end: 20140125
  40. PANTOZOL [Concomitant]
     Active Substance: PANTOPRAZOLE SODIUM
     Indication: COLITIS ULCERATIVE
     Dates: start: 20131203
  41. ROPIVACAINE [Concomitant]
     Active Substance: ROPIVACAINE
     Indication: PAIN
     Dates: start: 201401
  42. MERONEM [Concomitant]
     Active Substance: MEROPENEM
     Indication: INFECTION PROPHYLAXIS
     Dates: start: 20140121
  43. CISATRACURIUM [Concomitant]
     Active Substance: CISATRACURIUM
     Indication: INTRAOPERATIVE CARE
     Dates: start: 20140116, end: 20140116
  44. GELAFUNDIN [Concomitant]
     Active Substance: CALCIUM CHLORIDE\GELATIN\SODIUM CHLORIDE
     Indication: ELECTROLYTE SUBSTITUTION THERAPY
     Dates: start: 20140116, end: 20140116
  45. ASPIRIN. [Concomitant]
     Active Substance: ASPIRIN
     Indication: PRODUCT USED FOR UNKNOWN INDICATION
  46. TAVOR [Suspect]
     Active Substance: LORAZEPAM
     Indication: PAIN
     Dates: start: 20140119, end: 20140119
  47. TAVOR [Suspect]
     Active Substance: LORAZEPAM
     Dates: start: 20140121, end: 20140121
  48. PARACETAMOL [Concomitant]
     Active Substance: ACETAMINOPHEN
     Indication: PAIN
     Dates: start: 20140116, end: 20140116
  49. JONOSTERIL [Concomitant]
     Active Substance: UNSPECIFIED INGREDIENT
     Indication: ELECTROLYTE SUBSTITUTION THERAPY
     Dates: start: 20140107, end: 20140107
  50. PROPOFOL. [Concomitant]
     Active Substance: PROPOFOL
     Dates: start: 20140116, end: 20140116
  51. ONDANSETRON [Suspect]
     Active Substance: ONDANSETRON
     Indication: NAUSEA
     Dates: start: 20140121, end: 20140121
  52. DIPIDOLOR [Suspect]
     Active Substance: PIRITRAMIDE
     Dates: start: 20140118, end: 20140122
  53. PLACEBO [Suspect]
     Active Substance: UNSPECIFIED INGREDIENT
     Indication: COLITIS ULCERATIVE
     Dates: start: 20131220, end: 20131220
  54. MEZAVANT [Concomitant]
     Active Substance: MESALAMINE
     Indication: COLITIS ULCERATIVE
     Dates: start: 20131126, end: 20140103
  55. ROPIVACAINE [Concomitant]
     Active Substance: ROPIVACAINE
     Indication: SEDATIVE THERAPY
     Dates: start: 20140116, end: 20140116
  56. NAROPIN [Concomitant]
     Active Substance: ROPIVACAINE HYDROCHLORIDE
     Indication: PAIN
     Dates: start: 20140116, end: 20140116
  57. NEOSTIGMINE [Concomitant]
     Active Substance: NEOSTIGMINE
     Indication: GASTROINTESTINAL MOTILITY DISORDER
     Dates: start: 20140120, end: 20140120
  58. MOVIPREP [Concomitant]
     Active Substance: ASCORBIC ACID\POLYETHYLENE GLYCOL 3350\POTASSIUM CHLORIDE\SODIUM ASCORBATE\SODIUM CHLORIDE\SODIUM SULFATE
     Indication: LAXATIVE SUPPORTIVE CARE
     Dates: start: 20140115, end: 20140115
  59. ROCEPHIN [Concomitant]
     Active Substance: CEFTRIAXONE SODIUM
     Indication: INFECTION PROPHYLAXIS
     Dates: start: 20140114, end: 20140116
  60. ELECTROLYTES NOS [Concomitant]
     Active Substance: ELECTROLYTES NOS
     Dates: start: 20140118
  61. VIGANTOLETTEN [Concomitant]
     Active Substance: CHOLECALCIFEROL
     Indication: PROPHYLAXIS

REACTIONS (4)
  - Pyrexia [Recovering/Resolving]
  - Delirium [Unknown]
  - Pneumonia [Recovering/Resolving]
  - Pain [Recovering/Resolving]

NARRATIVE: CASE EVENT DATE: 20140121
